FAERS Safety Report 5298424-6 (Version None)
Quarter: 2007Q2

REPORT INFORMATION
  Report Type: 
  Country: None (occurrence: None)
  Receive Date: 20070416
  Receipt Date: 20070404
  Transmission Date: 20071010
  Serious: Yes (Other)
  Sender: FDA-Public Use
  Company Number: US-PFIZER INC-2007028237

PATIENT
  Sex: Male
  Weight: 73.5 kg

DRUGS (6)
  1. LIPITOR [Suspect]
     Indication: BLOOD CHOLESTEROL INCREASED
  2. LISINOPRIL [Concomitant]
  3. METOPROLOL SUCCINATE [Concomitant]
  4. PRILOSEC [Concomitant]
  5. ACETYLSALICYLIC ACID SRT [Concomitant]
  6. VITAMIN E [Concomitant]

REACTIONS (2)
  - CORONARY ARTERY BYPASS [None]
  - MYALGIA [None]
